FAERS Safety Report 19660876 (Version 1)
Quarter: 2021Q3

REPORT INFORMATION
  Report Type: Report from Study
  Country: US (occurrence: US)
  Receive Date: 20210805
  Receipt Date: 20210805
  Transmission Date: 20211014
  Serious: Yes (Hospitalization)
  Sender: FDA-Public Use
  Company Number: US-SA-2019SA320101

PATIENT
  Age: 86 Year
  Sex: Female

DRUGS (3)
  1. DUPILUMAB [Suspect]
     Active Substance: DUPILUMAB
     Indication: DERMATITIS ATOPIC
     Dosage: 600 MG, 1X
     Route: 058
     Dates: start: 20191106, end: 20191106
  2. DUPILUMAB [Suspect]
     Active Substance: DUPILUMAB
     Indication: DERMATITIS ALLERGIC
     Dosage: 300 MG, QOW
     Route: 058
  3. ASPIRIN [ACETYLSALICYLIC ACID] [Concomitant]
     Active Substance: ASPIRIN
     Dosage: UNK

REACTIONS (31)
  - Localised infection [Unknown]
  - Dyspnoea [Recovering/Resolving]
  - Eye infection [Not Recovered/Not Resolved]
  - Therapeutic product effect incomplete [Unknown]
  - Incorrect route of product administration [Unknown]
  - Skin atrophy [Unknown]
  - Musculoskeletal stiffness [Not Recovered/Not Resolved]
  - Product dose omission issue [Unknown]
  - Product preparation error [Unknown]
  - Arthralgia [Unknown]
  - Tremor [Unknown]
  - Feeling abnormal [Not Recovered/Not Resolved]
  - Fatigue [Not Recovered/Not Resolved]
  - Joint swelling [Unknown]
  - Pruritus [Unknown]
  - Skin disorder [Unknown]
  - Weight increased [Unknown]
  - Skin haemorrhage [Unknown]
  - Visual impairment [Not Recovered/Not Resolved]
  - Scratch [Unknown]
  - Skin ulcer haemorrhage [Unknown]
  - Injury associated with device [Recovered/Resolved]
  - Memory impairment [Not Recovered/Not Resolved]
  - Alopecia [Not Recovered/Not Resolved]
  - Vision blurred [Recovering/Resolving]
  - Skin haemorrhage [Recovered/Resolved]
  - Device use error [Recovered/Resolved]
  - Muscle spasms [Unknown]
  - Dry skin [Not Recovered/Not Resolved]
  - Gait disturbance [Unknown]
  - Condition aggravated [Unknown]

NARRATIVE: CASE EVENT DATE: 201911
